FAERS Safety Report 20328463 (Version 1)
Quarter: 2022Q1

REPORT INFORMATION
  Report Type: Spontaneous
  Country: US (occurrence: None)
  Receive Date: 20220112
  Receipt Date: 20220112
  Transmission Date: 20220423
  Serious: No
  Sender: FDA-Public Use
  Company Number: None

PATIENT
  Age: 55 Year
  Sex: Male

DRUGS (1)
  1. MOMETASONE FUROATE [Suspect]
     Active Substance: MOMETASONE FUROATE
     Indication: Chronic obstructive pulmonary disease
     Dosage: OTHER STRENGTH : 220MCG/INHL;?FREQUENCY : TWICE A DAY;?
     Route: 055
     Dates: start: 20210720, end: 20211223

REACTIONS (6)
  - Oral candidiasis [None]
  - Oesophageal candidiasis [None]
  - Weight decreased [None]
  - Hypophagia [None]
  - Dehydration [None]
  - Regurgitation [None]

NARRATIVE: CASE EVENT DATE: 20211122
